FAERS Safety Report 9845487 (Version 2)
Quarter: 2014Q1

REPORT INFORMATION
  Report Type: Spontaneous
  Country: DE (occurrence: None)
  Receive Date: 20140123
  Receipt Date: 20140221
  Transmission Date: 20141002
  Serious: Yes (Other)
  Sender: FDA-Public Use
  Company Number: DE-014426

PATIENT
  Age: 8 Year
  Sex: Male
  Weight: 28 kg

DRUGS (1)
  1. DESMOTABS [Suspect]
     Indication: ENURESIS
     Dosage: (0.3 MG ORAL)
     Dates: start: 20131002, end: 20131104

REACTIONS (6)
  - Aggression [None]
  - Obsessive-compulsive disorder [None]
  - Restlessness [None]
  - Disturbance in attention [None]
  - Aggression [None]
  - Erythema [None]
